FAERS Safety Report 7480603-0 (Version None)
Quarter: 2011Q2

REPORT INFORMATION
  Report Type: 
  Country: None (occurrence: None)
  Receive Date: 20110516
  Receipt Date: 20110510
  Transmission Date: 20111010
  Serious: Yes (Death, Other)
  Sender: FDA-Public Use
  Company Number: US-ASTELLAS-2011US002091

PATIENT
  Sex: Male

DRUGS (3)
  1. TRAZODONE HCL [Concomitant]
     Indication: HEPATIC NEOPLASM MALIGNANT
     Dosage: 25 MG, UID/QD
     Route: 048
  2. PROGRAF [Suspect]
     Indication: RENAL TRANSPLANT
     Dosage: 5 MG, BID
     Route: 048
  3. MYFORTIC [Concomitant]
     Indication: HEPATIC NEOPLASM MALIGNANT
     Dosage: 500 MG, BID
     Route: 048

REACTIONS (2)
  - DEATH [None]
  - HEPATIC NEOPLASM MALIGNANT [None]
